FAERS Safety Report 25466257 (Version 1)
Quarter: 2025Q2

REPORT INFORMATION
  Report Type: Spontaneous
  Country: IT (occurrence: IT)
  Receive Date: 20250623
  Receipt Date: 20250623
  Transmission Date: 20250717
  Serious: Yes (Hospitalization, Other)
  Sender: CIPLA
  Company Number: IT-MINISAL02-1043452

PATIENT

DRUGS (1)
  1. RIVAROXABAN [Suspect]
     Active Substance: RIVAROXABAN
     Indication: Atrial fibrillation
     Dosage: 15 MG, EVERY 24 HOURS (COATED TABLET)
     Route: 048
     Dates: start: 20200721, end: 20250318

REACTIONS (1)
  - Hypohaemoglobinaemia [Recovering/Resolving]

NARRATIVE: CASE EVENT DATE: 20250409
